FAERS Safety Report 9926116 (Version 2)
Quarter: 2014Q1

REPORT INFORMATION
  Report Type: Spontaneous
  Country: IT (occurrence: IT)
  Receive Date: 20140226
  Receipt Date: 20140313
  Transmission Date: 20141002
  Serious: Yes (Other)
  Sender: FDA-Public Use
  Company Number: IT-ASTRAZENECA-2014SE11998

PATIENT
  Age: 24934 Day
  Sex: Male

DRUGS (3)
  1. RATACAND PLUS [Suspect]
     Indication: HYPERTENSION
     Dosage: 16/12.5MG, 5 DF DAILY
     Route: 048
     Dates: start: 20130101, end: 20131122
  2. RATACAND [Suspect]
     Route: 048
  3. TAMSULOSIN [Suspect]
     Indication: BENIGN PROSTATIC HYPERPLASIA
     Route: 048
     Dates: start: 20130101, end: 20131122

REACTIONS (1)
  - Syncope [Recovering/Resolving]
